FAERS Safety Report 13020877 (Version 1)
Quarter: 2016Q4

REPORT INFORMATION
  Report Type: Spontaneous
  Country: FR (occurrence: FR)
  Receive Date: 20161212
  Receipt Date: 20161212
  Transmission Date: 20170207
  Serious: Yes (Hospitalization)
  Sender: FDA-Public Use
  Company Number: FR-CONCORDIA PHARMACEUTICALS INC.-GSH201612-006338

PATIENT
  Age: 53 Year
  Sex: Male

DRUGS (8)
  1. CORTANCYL [Concomitant]
     Active Substance: PREDNISONE
  2. SINTROM [Concomitant]
     Active Substance: ACENOCOUMAROL
  3. KARDEGIC [Concomitant]
     Active Substance: ASPIRIN LYSINE
  4. BISOCE [Concomitant]
     Active Substance: BISOPROLOL
  5. METFORMIN [Concomitant]
     Active Substance: METFORMIN HYDROCHLORIDE
  6. INEXIUM [Concomitant]
     Active Substance: ESOMEPRAZOLE
  7. PERINDOPRIL [Concomitant]
     Active Substance: PERINDOPRIL
  8. PLAQUENIL [Suspect]
     Active Substance: HYDROXYCHLOROQUINE SULFATE
     Indication: ANTIPHOSPHOLIPID SYNDROME
     Route: 048
     Dates: start: 201304, end: 201409

REACTIONS (2)
  - Left ventricular dysfunction [Recovered/Resolved]
  - Ventricular extrasystoles [Recovered/Resolved]

NARRATIVE: CASE EVENT DATE: 201407
